FAERS Safety Report 4986289-9 (Version None)
Quarter: 2006Q2

REPORT INFORMATION
  Report Type: 
  Country: None (occurrence: None)
  Receive Date: 20060428
  Receipt Date: 20060118
  Transmission Date: 20061013
  Serious: Yes (Hospitalization)
  Sender: FDA-Public Use
  Company Number: US-MERCK-0601USA02227

PATIENT
  Age: 75 Year
  Sex: Female
  Weight: 130 kg

DRUGS (5)
  1. VIOXX [Suspect]
     Indication: OSTEOARTHRITIS
     Route: 048
     Dates: start: 19990501, end: 20040901
  2. K-DUR 10 [Concomitant]
     Indication: MINERAL SUPPLEMENTATION
     Route: 065
  3. SYNTHROID [Concomitant]
     Route: 065
  4. HYDROCHLOROTHIAZIDE AND TRIAMTERENE [Concomitant]
     Indication: BLOOD PRESSURE
     Route: 065
     Dates: start: 19920101
  5. [THERAPY UNSPECIFIED] [Concomitant]
     Route: 065

REACTIONS (5)
  - ARTHROPATHY [None]
  - BLOOD CHOLESTEROL INCREASED [None]
  - BLOOD TRIGLYCERIDES INCREASED [None]
  - DYSPEPSIA [None]
  - PULMONARY EMBOLISM [None]
